FAERS Safety Report 9423281 (Version 1)
Quarter: 2013Q3

REPORT INFORMATION
  Report Type: Spontaneous
  Country: US (occurrence: US)
  Receive Date: 20130726
  Receipt Date: 20130726
  Transmission Date: 20140515
  Serious: Yes (Other)
  Sender: FDA-Public Use
  Company Number: US-INCYTE CORPORATION-2013IN001638

PATIENT
  Sex: Female

DRUGS (2)
  1. JAKAFI [Suspect]
     Dosage: 20 MG, QD
     Route: 048
  2. LATANOPROST [Concomitant]
     Route: 047

REACTIONS (1)
  - Acute myeloid leukaemia [Unknown]
